FAERS Safety Report 4349520-9 (Version None)
Quarter: 2004Q2

REPORT INFORMATION
  Report Type: 
  Country: None (occurrence: None)
  Receive Date: 20040426
  Receipt Date: 20040415
  Transmission Date: 20050107
  Serious: Yes (Hospitalization)
  Sender: FDA-Public Use
  Company Number: US068059

PATIENT
  Age: 16 Year
  Sex: Male
  Weight: 74 kg

DRUGS (2)
  1. ENBREL [Suspect]
     Indication: JUVENILE ARTHRITIS
     Dosage: 25 MG, 2 IN 1 WEEKS, SC
     Route: 058
     Dates: start: 20010720, end: 20031210
  2. ROFECOXIB [Concomitant]

REACTIONS (4)
  - ANAL FISTULA [None]
  - IMPAIRED HEALING [None]
  - INFECTION [None]
  - PILONIDAL CYST [None]
